FAERS Safety Report 4643568-2 (Version None)
Quarter: 2005Q2

REPORT INFORMATION
  Report Type: 
  Country: None (occurrence: None)
  Receive Date: 20050331
  Receipt Date: 20050105
  Transmission Date: 20051028
  Serious: Yes (Hospitalization)
  Sender: FDA-Public Use
  Company Number: 05P-163-0285413-00

PATIENT
  Age: 76 Year
  Sex: Male

DRUGS (6)
  1. HUMIRA [Suspect]
     Indication: RHEUMATOID ARTHRITIS
     Dosage: 40 MG, 1 IN 2 WK, SUBCUTANEOUS
     Route: 058
     Dates: start: 20041001, end: 20041111
  2. PREDNISONE [Concomitant]
  3. GABAPENTIN [Concomitant]
  4. ACETYL SALICYLIC ACID USP BAT [Concomitant]
  5. LISINOPRIL [Concomitant]
  6. TOPROL-XL [Concomitant]

REACTIONS (2)
  - BLOOD GLUCOSE INCREASED [None]
  - PNEUMONIA [None]
